FAERS Safety Report 22858182 (Version 2)
Quarter: 2023Q4

REPORT INFORMATION
  Report Type: Spontaneous
  Country: PL (occurrence: PL)
  Receive Date: 20230824
  Receipt Date: 20231010
  Transmission Date: 20240110
  Serious: Yes (Death, Hospitalization, Other)
  Sender: FDA-Public Use
  Company Number: PL-ELI_LILLY_AND_COMPANY-PL202308011206

PATIENT
  Age: 45 Year
  Sex: Male

DRUGS (2)
  1. CYRAMZA [Suspect]
     Active Substance: RAMUCIRUMAB
     Indication: Gastrooesophageal cancer
     Dosage: 8 MG/KG, UNKNOWN
     Route: 065
     Dates: start: 20230614, end: 20230726
  2. PACLITAXEL [Concomitant]
     Active Substance: PACLITAXEL
     Indication: Oesophageal adenocarcinoma
     Dosage: UNK UNK, UNKNOWN
     Dates: start: 20230614, end: 20230726

REACTIONS (8)
  - Death [Fatal]
  - Hyperbilirubinaemia [Unknown]
  - Hepatic failure [Unknown]
  - Renal failure [Unknown]
  - Coagulopathy [Unknown]
  - Pyrexia [Unknown]
  - General physical health deterioration [Unknown]
  - Altered state of consciousness [Unknown]

NARRATIVE: CASE EVENT DATE: 20230901
